FAERS Safety Report 9959378 (Version 1)
Quarter: 2014Q1

REPORT INFORMATION
  Report Type: Spontaneous
  Country: US (occurrence: US)
  Receive Date: 20140305
  Receipt Date: 20140305
  Transmission Date: 20141002
  Serious: No
  Sender: FDA-Public Use
  Company Number: US-ABBVIE-13P-163-1106746-00

PATIENT
  Age: 40 Year
  Sex: Female
  Weight: 81.72 kg

DRUGS (5)
  1. HUMIRA [Suspect]
     Indication: CROHN^S DISEASE
     Dates: start: 20130422
  2. SYNTHROID [Concomitant]
     Indication: THYROIDECTOMY
     Dosage: 150 MCG DAILY
     Dates: start: 200804
  3. NEXIUM [Concomitant]
     Indication: DYSPEPSIA
  4. ALLEGRA 24 HOUR [Concomitant]
     Indication: SEASONAL ALLERGY
     Dosage: 180 MG DAILY
  5. XANAX [Concomitant]
     Indication: ANXIETY

REACTIONS (9)
  - Breast discharge [Not Recovered/Not Resolved]
  - Galactostasis [Not Recovered/Not Resolved]
  - Injection site pain [Recovered/Resolved]
  - Injection site pain [Recovered/Resolved]
  - Injection site pain [Unknown]
  - Incorrect dose administered [Unknown]
  - Wrong technique in drug usage process [Unknown]
  - Wrong technique in drug usage process [Unknown]
  - Breast cyst [Not Recovered/Not Resolved]
